FAERS Safety Report 25168423 (Version 1)
Quarter: 2025Q2

REPORT INFORMATION
  Report Type: Spontaneous
  Country: US (occurrence: US)
  Receive Date: 20250407
  Receipt Date: 20250407
  Transmission Date: 20250716
  Serious: No
  Sender: PFIZER
  Company Number: US-PFIZER INC-PV202500040115

PATIENT
  Age: 75 Year
  Sex: Male

DRUGS (16)
  1. SPIRONOLACTONE [Suspect]
     Active Substance: SPIRONOLACTONE
     Indication: Hypertension
  2. BUSPIRONE [Suspect]
     Active Substance: BUSPIRONE HYDROCHLORIDE
     Dates: start: 2025
  3. KORLYM [Concomitant]
     Active Substance: MIFEPRISTONE
     Indication: Cushing^s syndrome
     Dosage: 300 MG, 1X/DAY
     Route: 048
     Dates: start: 20240420
  4. KORLYM [Concomitant]
     Active Substance: MIFEPRISTONE
     Dosage: 600 MG, 1X/DAY
     Route: 048
     Dates: start: 202405
  5. PREDNISONE [Concomitant]
     Active Substance: PREDNISONE
  6. ALLOPURINOL [Concomitant]
     Active Substance: ALLOPURINOL
  7. ANASTROZOLE [Concomitant]
     Active Substance: ANASTROZOLE
  8. CHLORTHALIDONE [Concomitant]
     Active Substance: CHLORTHALIDONE
  9. IVERMECTIN [Concomitant]
     Active Substance: IVERMECTIN
  10. LIOTHYRONINE [Concomitant]
     Active Substance: LIOTHYRONINE
  11. LIVALO [Concomitant]
     Active Substance: PITAVASTATIN CALCIUM
  12. METAMUCIL [Concomitant]
     Active Substance: PLANTAGO SEED
  13. MIRALAX [Concomitant]
     Active Substance: POLYETHYLENE GLYCOL 3350
  14. POTASSIUM CITRATE [Concomitant]
     Active Substance: POTASSIUM CITRATE
  15. SYNTHROID [Concomitant]
     Active Substance: LEVOTHYROXINE SODIUM
  16. TESTOSTERONE [Concomitant]
     Active Substance: TESTOSTERONE

REACTIONS (4)
  - Eyelid ptosis [Not Recovered/Not Resolved]
  - Visual impairment [Not Recovered/Not Resolved]
  - Oropharyngeal pain [Not Recovered/Not Resolved]
  - Blood pressure increased [Not Recovered/Not Resolved]
